FAERS Safety Report 6572727-7 (Version None)
Quarter: 2010Q1

REPORT INFORMATION
  Report Type: 
  Country: None (occurrence: None)
  Receive Date: 20100205
  Receipt Date: 20100202
  Transmission Date: 20100710
  Serious: Yes (Death)
  Sender: FDA-Public Use
  Company Number: UA-ABBOTT-10P-269-0623513-00

PATIENT
  Age: 81 Year
  Sex: Male
  Weight: 86 kg

DRUGS (1)
  1. LUCRIN DEPOT 3.75 MG [Suspect]
     Indication: PROSTATE CANCER
     Route: 058
     Dates: start: 20090605

REACTIONS (3)
  - CARDIOVASCULAR INSUFFICIENCY [None]
  - MULTI-ORGAN FAILURE [None]
  - PROSTATE CANCER [None]
